FAERS Safety Report 17696685 (Version 1)
Quarter: 2020Q2

REPORT INFORMATION
  Report Type: Spontaneous
  Country: BR (occurrence: BR)
  Receive Date: 20200423
  Receipt Date: 20200423
  Transmission Date: 20200714
  Serious: Yes (Other)
  Sender: FDA-Public Use
  Company Number: BR-GLAXOSMITHKLINE-BR2020064094

PATIENT
  Sex: Male

DRUGS (1)
  1. COMBODART [Suspect]
     Active Substance: DUTASTERIDE\TAMSULOSIN
     Indication: BENIGN PROSTATIC HYPERPLASIA
     Dosage: 1 DF, QD (0.9 CAPSULE, AT NIGHT)

REACTIONS (5)
  - Urinary retention [Unknown]
  - Dysuria [Unknown]
  - Therapeutic product effect incomplete [Unknown]
  - Product complaint [Unknown]
  - Prostate infection [Unknown]
